FAERS Safety Report 5226091-6 (Version None)
Quarter: 2007Q1

REPORT INFORMATION
  Report Type: 
  Country: None (occurrence: None)
  Receive Date: 20070201
  Receipt Date: 20070126
  Transmission Date: 20070707
  Serious: Yes (Hospitalization, Disabling)
  Sender: FDA-Public Use
  Company Number: HQWYE036714OCT05

PATIENT
  Sex: Male
  Weight: 62.6 kg

DRUGS (11)
  1. RAPAMUNE [Suspect]
     Indication: PROPHYLAXIS AGAINST TRANSPLANT REJECTION
     Route: 048
     Dates: start: 20050418, end: 20051007
  2. PREDNISONE [Concomitant]
     Indication: IMMUNOSUPPRESSANT DRUG THERAPY
     Dosage: NOT PROVIDED
     Route: 065
  3. PREDNISONE [Concomitant]
     Route: 048
  4. METOPROLOL TARTRATE [Concomitant]
     Indication: HYPERTENSION
     Dosage: NOT PROVIDED
     Route: 065
     Dates: end: 20051001
  5. METOPROLOL TARTRATE [Concomitant]
     Route: 048
     Dates: start: 20051001
  6. ISOPHANE INSULIN [Concomitant]
     Indication: DIABETES MELLITUS
     Dosage: 30 UNIT EVERY 1 DAY
     Route: 058
  7. CARDURA [Concomitant]
     Indication: HYPERTENSION
     Dosage: NOT PROVIDED
     Route: 065
     Dates: end: 20051001
  8. MYCOPHENOLATE MOFETIL [Suspect]
     Indication: IMMUNOSUPPRESSANT DRUG THERAPY
     Dosage: NOT PROVIDED
     Route: 065
  9. MYCOPHENOLATE MOFETIL [Suspect]
     Route: 048
  10. VALCYTE [Concomitant]
     Dosage: NOT PROVIDED
     Route: 065
  11. VALCYTE [Concomitant]
     Route: 048

REACTIONS (2)
  - DIARRHOEA [None]
  - FAILURE TO THRIVE [None]
